FAERS Safety Report 22823658 (Version 2)
Quarter: 2023Q4

REPORT INFORMATION
  Report Type: Spontaneous
  Country: US (occurrence: US)
  Receive Date: 20230815
  Receipt Date: 20231124
  Transmission Date: 20240109
  Serious: Yes (Hospitalization, Other)
  Sender: FDA-Public Use
  Company Number: US-PFIZER INC-PV202300139351

PATIENT
  Age: 66 Year
  Sex: Male
  Weight: 97.51 kg

DRUGS (3)
  1. XELJANZ [Suspect]
     Active Substance: TOFACITINIB CITRATE
     Indication: Psoriatic arthropathy
     Dosage: 20 MG, 1X/DAY
     Dates: start: 20230206, end: 20230815
  2. XELJANZ [Suspect]
     Active Substance: TOFACITINIB CITRATE
     Indication: Rheumatoid arthritis
  3. METHOTREXATE [Concomitant]
     Active Substance: METHOTREXATE
     Dosage: UNK
     Dates: start: 20230101, end: 20230909

REACTIONS (11)
  - West Nile viral infection [Not Recovered/Not Resolved]
  - Gastric haemorrhage [Unknown]
  - Encephalitis [Unknown]
  - Meningitis [Unknown]
  - Brain oedema [Unknown]
  - Muscular weakness [Not Recovered/Not Resolved]
  - Fatigue [Unknown]
  - Asthenia [Unknown]
  - Pyrexia [Unknown]
  - Spinal stenosis [Unknown]
  - Infection [Unknown]

NARRATIVE: CASE EVENT DATE: 20230901
